FAERS Safety Report 8583523-3 (Version None)
Quarter: 2012Q3

REPORT INFORMATION
  Report Type: 
  Country: None (occurrence: None)
  Receive Date: 20120809
  Receipt Date: 20120803
  Transmission Date: 20120928
  Serious: No
  Sender: FDA-Public Use
  Company Number: PHHY2012BR063242

PATIENT
  Sex: Female
  Weight: 84.7 kg

DRUGS (3)
  1. SIMVASTATIN [Suspect]
     Indication: BLOOD CHOLESTEROL INCREASED
     Dosage: 1 DF, BID
     Route: 048
     Dates: start: 20120629
  2. ATENOLOL [Concomitant]
     Indication: HYPERTENSION
     Dosage: 25 MG, QD
     Route: 048
  3. ATENOLOL [Concomitant]
     Indication: HYPERTENSION
     Dosage: 1 DF, QD

REACTIONS (5)
  - INSOMNIA [None]
  - INFLUENZA [None]
  - FATIGUE [None]
  - DYSPNOEA [None]
  - GLOSSODYNIA [None]
